FAERS Safety Report 8895066 (Version 2)
Quarter: 2012Q4

REPORT INFORMATION
  Report Type: 
  Country: JP (occurrence: JP)
  Receive Date: 20121108
  Receipt Date: 20121113
  Transmission Date: 20130627
  Serious: Yes (Other)
  Sender: FDA-Public Use
  Company Number: CHPA2012JP023122

PATIENT
  Sex: Male

DRUGS (6)
  1. PURSENNID [Suspect]
     Indication: CONSTIPATION
     Dosage: Unk, Unk
     Route: 048
  2. CONIEL [Suspect]
     Dosage: Unk, Unk
     Route: 048
     Dates: end: 20121101
  3. ZYLORIC [Concomitant]
     Dosage: Unk, Unk
     Route: 048
  4. URSO [Concomitant]
     Dosage: Unk, Unk
     Route: 048
  5. LENDORMIN [Concomitant]
     Dosage: Unk, Unk
     Route: 048
  6. MAGMITT [Concomitant]
     Dosage: Unk, Unk
     Route: 048

REACTIONS (1)
  - Retinal vein occlusion [Not Recovered/Not Resolved]
